FAERS Safety Report 15523794 (Version 1)
Quarter: 2018Q4

REPORT INFORMATION
  Report Type: Spontaneous
  Country: NO (occurrence: NO)
  Receive Date: 20181018
  Receipt Date: 20181018
  Transmission Date: 20190205
  Serious: Yes (Hospitalization, Disabling, Other)
  Sender: FDA-Public Use
  Company Number: NO-ROCHE-2200353

PATIENT
  Sex: Female

DRUGS (1)
  1. MABTHERA [Suspect]
     Active Substance: RITUXIMAB
     Indication: JUVENILE IDIOPATHIC ARTHRITIS
     Route: 065
     Dates: start: 2006, end: 2009

REACTIONS (13)
  - Vesical fistula [Not Recovered/Not Resolved]
  - Pyoderma gangrenosum [Not Recovered/Not Resolved]
  - Pain [Unknown]
  - Osteoporotic fracture [Not Recovered/Not Resolved]
  - Immunodeficiency [Unknown]
  - Fistula [Unknown]
  - Enterostomy [Not Recovered/Not Resolved]
  - Abscess neck [Recovered/Resolved]
  - Female genital tract fistula [Not Recovered/Not Resolved]
  - Impaired healing [Not Recovered/Not Resolved]
  - Osteomyelitis [Unknown]
  - Autoimmune disorder [Recovering/Resolving]
  - Genital disorder female [Not Recovered/Not Resolved]

NARRATIVE: CASE EVENT DATE: 2009
